APPROVED DRUG PRODUCT: FILSPARI
Active Ingredient: SPARSENTAN
Strength: 400MG
Dosage Form/Route: TABLET;ORAL
Application: N216403 | Product #002
Applicant: TRAVERE THERAPEUTICS INC
Approved: Feb 17, 2023 | RLD: Yes | RS: Yes | Type: RX

PATENTS:
Patent 9993461 | Expires: Mar 29, 2030
Patent 9993461 | Expires: Mar 29, 2030

EXCLUSIVITY:
Code: NCE | Date: Feb 17, 2028
Code: ODE-389 | Date: Feb 17, 2030
Code: ODE-493 | Date: Sep 5, 2031